FAERS Safety Report 8504751-9 (Version None)
Quarter: 2012Q3

REPORT INFORMATION
  Report Type: 
  Country: None (occurrence: None)
  Receive Date: 20120712
  Receipt Date: 20120629
  Transmission Date: 20120928
  Serious: Yes (Disabling)
  Sender: FDA-Public Use
  Company Number: BR-AMGEN-BRASP2012041574

PATIENT
  Age: 58 Year
  Sex: Female
  Weight: 101 kg

DRUGS (7)
  1. ENBREL [Suspect]
     Indication: RHEUMATOID ARTHRITIS
     Dosage: 50 MG, ONCE WEEKLY
     Route: 058
     Dates: start: 20120301, end: 20120611
  2. DAFLON                             /00426001/ [Concomitant]
     Indication: VARICOSE VEIN
     Dosage: UNK
  3. RETEMIC [Concomitant]
     Dosage: UNK
  4. ARTROLIVE [Concomitant]
  5. TANDRILAX [Concomitant]
     Dosage: UNK UNK, UNK
  6. METICORTEN [Concomitant]
     Dosage: UNK
  7. LISINOPRIL [Concomitant]
     Dosage: UNK

REACTIONS (2)
  - GAIT DISTURBANCE [None]
  - PAIN IN EXTREMITY [None]
